FAERS Safety Report 5697408-3 (Version None)
Quarter: 2008Q2

REPORT INFORMATION
  Report Type: 
  Country: None (occurrence: None)
  Receive Date: 20080407
  Receipt Date: 20080328
  Transmission Date: 20081010
  Serious: Yes (Hospitalization, Other)
  Sender: FDA-Public Use
  Company Number: PHHY2008JP04035

PATIENT
  Age: 74 Year
  Sex: Male

DRUGS (1)
  1. VOLTAREN [Suspect]
     Indication: SPINAL OSTEOARTHRITIS
     Dosage: 100 MG
     Route: 054
     Dates: start: 20050101

REACTIONS (1)
  - CEREBRAL INFARCTION [None]
